FAERS Safety Report 24660158 (Version 2)
Quarter: 2024Q4

REPORT INFORMATION
  Report Type: Spontaneous
  Country: US (occurrence: US)
  Receive Date: 20241125
  Receipt Date: 20241210
  Transmission Date: 20250115
  Serious: Yes (Death, Hospitalization, Other)
  Sender: BRISTOL-MYERS SQUIBB COMPANY
  Company Number: US-BRISTOL-MYERS SQUIBB COMPANY-2024-181496

PATIENT
  Age: 47 Year
  Sex: Female

DRUGS (3)
  1. AUGTYRO [Suspect]
     Active Substance: REPOTRECTINIB
     Indication: Product used for unknown indication
     Dosage: DOSE : 40MG;     FREQ : ONCE DAILY FOR 14 DAYS
     Route: 048
  2. AUGTYRO [Suspect]
     Active Substance: REPOTRECTINIB
     Dosage: DOSE: 160 MG; FREQ: FOLLOWED BY 4 CAPS TWICE DAILY.
     Route: 048
  3. AUGTYRO [Suspect]
     Active Substance: REPOTRECTINIB
     Dosage: DOSE: 160 MG; FREQ: FOLLOWED BY 4 CAPS TWICE DAILY.
     Route: 048

REACTIONS (2)
  - Adverse event [Unknown]
  - Death [Fatal]
